FAERS Safety Report 7344049-8 (Version None)
Quarter: 2011Q1

REPORT INFORMATION
  Report Type: 
  Country: None (occurrence: None)
  Receive Date: 20110310
  Receipt Date: 20100514
  Transmission Date: 20110831
  Serious: No
  Sender: FDA-Public Use
  Company Number: A0859748A

PATIENT
  Age: 33 Year
  Sex: Male

DRUGS (2)
  1. NICORETTE [Suspect]
     Dates: start: 20100513, end: 20100513
  2. NICORETTE (MINT) [Suspect]

REACTIONS (4)
  - INTENTIONAL DRUG MISUSE [None]
  - DRUG ADMINISTRATION ERROR [None]
  - DYSPEPSIA [None]
  - NICOTINE DEPENDENCE [None]
